FAERS Safety Report 5893688-X (Version None)
Quarter: 2008Q3

REPORT INFORMATION
  Report Type: 
  Country: None (occurrence: None)
  Receive Date: 20080923
  Receipt Date: 20071017
  Transmission Date: 20090109
  Serious: No
  Sender: FDA-Public Use
  Company Number: US-ASTRAZENECA-2007UW24109

PATIENT
  Age: 11 Year
  Sex: Male
  Weight: 48.2 kg

DRUGS (1)
  1. SEROQUEL [Suspect]
     Route: 048

REACTIONS (5)
  - ANGER [None]
  - CHEST PAIN [None]
  - DYSPNOEA [None]
  - MUSCLE TWITCHING [None]
  - SOMNOLENCE [None]
